FAERS Safety Report 16509619 (Version 2)
Quarter: 2019Q3

REPORT INFORMATION
  Report Type: Report from Study
  Country: US (occurrence: US)
  Receive Date: 20190701
  Receipt Date: 20190708
  Transmission Date: 20191004
  Serious: Yes (Death, Hospitalization)
  Sender: FDA-Public Use
  Company Number: US-EXELIXIS-CABO-19021004

PATIENT
  Age: 43 Year
  Sex: Male

DRUGS (6)
  1. CIPROFLOXACIN. [Concomitant]
     Active Substance: CIPROFLOXACIN
     Dosage: UNK
  2. SANCUSO [Concomitant]
     Active Substance: GRANISETRON
     Dosage: UNK
  3. ENOXAPARIN [Concomitant]
     Active Substance: ENOXAPARIN
     Dosage: UNK
  4. YTTRIUM 90 IBRITUMOMAB TIUXETAN [Concomitant]
     Active Substance: IBRITUMOMAB TIUXETAN
     Dosage: UNK
  5. CABOMETYX [Suspect]
     Active Substance: CABOZANTINIB S-MALATE
     Indication: PANCREATIC CARCINOMA
     Dosage: UNK UNK, QD
     Dates: start: 20190606, end: 20190609
  6. ONDASETRON [Concomitant]
     Active Substance: ONDANSETRON
     Dosage: UNK

REACTIONS (3)
  - Septic shock [Fatal]
  - Off label use [Unknown]
  - Respiratory failure [Fatal]

NARRATIVE: CASE EVENT DATE: 20190610
